FAERS Safety Report 7536569-8 (Version None)
Quarter: 2011Q2

REPORT INFORMATION
  Report Type: 
  Country: None (occurrence: None)
  Receive Date: 20110609
  Receipt Date: 20110531
  Transmission Date: 20111010
  Serious: Yes (Hospitalization)
  Sender: FDA-Public Use
  Company Number: IT-ASTRAZENECA-2010SE57728

PATIENT
  Age: 23827 Day
  Sex: Female

DRUGS (7)
  1. IRESSA [Suspect]
     Route: 048
     Dates: start: 20101130, end: 20101202
  2. EUTIROX [Concomitant]
     Dosage: 100 MICROGRAMS ON OTHER DAYS OF THE WEEK (EXCEPT THUESDAY AND FRIDAY)
     Route: 048
  3. CLEXANE T [Concomitant]
     Indication: THROMBOSIS PROPHYLAXIS
     Dosage: 12000 IU
     Route: 058
  4. MODURETIC 5-50 [Concomitant]
     Indication: ESSENTIAL HYPERTENSION
     Dosage: 5 MG+ 50 MG
     Route: 048
  5. PARACODINA [Concomitant]
     Indication: COUGH
     Dosage: 10.25 MG/ML
     Route: 048
  6. EUTIROX [Concomitant]
     Indication: GOITRE
     Dosage: 75 MICROGRAMS ON TUESDAY AND FRIDAY
     Route: 048
  7. IRESSA [Suspect]
     Indication: NON-SMALL CELL LUNG CANCER STAGE IV
     Dosage: 250 MG
     Route: 048
     Dates: start: 20100916, end: 20101014

REACTIONS (2)
  - EMBOLIC STROKE [None]
  - HYPERTRANSAMINASAEMIA [None]
